FAERS Safety Report 24859953 (Version 2)
Quarter: 2025Q1

REPORT INFORMATION
  Report Type: Spontaneous
  Country: FR (occurrence: FR)
  Receive Date: 20250119
  Receipt Date: 20250126
  Transmission Date: 20250408
  Serious: Yes (Hospitalization)
  Sender: CELLTRION
  Company Number: FR-ROCHE-3565785

PATIENT

DRUGS (20)
  1. BEVACIZUMAB [Suspect]
     Active Substance: BEVACIZUMAB
     Indication: Hepatocellular carcinoma
     Route: 042
     Dates: start: 20240229
  2. BEVACIZUMAB [Suspect]
     Active Substance: BEVACIZUMAB
     Route: 042
  3. TIRAGOLUMAB [Suspect]
     Active Substance: TIRAGOLUMAB
     Indication: Hepatocellular carcinoma
     Route: 042
     Dates: start: 20240229
  4. TIRAGOLUMAB [Suspect]
     Active Substance: TIRAGOLUMAB
     Route: 042
  5. ATEZOLIZUMAB [Suspect]
     Active Substance: ATEZOLIZUMAB
     Indication: Hepatocellular carcinoma
     Route: 042
     Dates: start: 20240229
  6. KARDEGIC [Concomitant]
     Active Substance: ASPIRIN DL-LYSINE
     Indication: Arteriosclerosis
     Route: 048
     Dates: start: 2012
  7. LANTUS [Concomitant]
     Active Substance: INSULIN GLARGINE
     Indication: Diabetes mellitus
     Route: 058
     Dates: start: 2004
  8. GLIMEPIRIDE [Concomitant]
     Active Substance: GLIMEPIRIDE
     Indication: Diabetes mellitus
     Route: 049
     Dates: start: 2023
  9. DAPAGLIFLOZIN [Concomitant]
     Active Substance: DAPAGLIFLOZIN
     Indication: Diabetes mellitus
     Route: 048
     Dates: start: 2023
  10. VALSARTAN [Concomitant]
     Active Substance: VALSARTAN
     Indication: Hypertension
     Route: 048
     Dates: start: 2017
  11. HYDROCHLOROTHIAZIDE\VALSARTAN [Concomitant]
     Active Substance: HYDROCHLOROTHIAZIDE\VALSARTAN
     Route: 048
     Dates: start: 20240221
  12. JANUVIA [Concomitant]
     Active Substance: SITAGLIPTIN PHOSPHATE
     Indication: Diabetes mellitus
     Route: 048
     Dates: start: 2022
  13. LYRICA [Concomitant]
     Active Substance: PREGABALIN
     Indication: Diabetic neuropathy
     Route: 048
     Dates: start: 2018
  14. HYALURONATE SODIUM\TREHALOSE [Concomitant]
     Active Substance: HYALURONATE SODIUM\TREHALOSE
     Indication: Glaucoma
     Route: 047
     Dates: start: 2022
  15. BIMATOPROST\TIMOLOL [Concomitant]
     Active Substance: BIMATOPROST\TIMOLOL
     Indication: Glaucoma
     Route: 047
     Dates: start: 2022
  16. BRINZOLAMIDE [Concomitant]
     Active Substance: BRINZOLAMIDE
     Indication: Glaucoma
     Route: 047
     Dates: start: 2022
  17. MORPHINE SULFATE [Concomitant]
     Active Substance: MORPHINE SULFATE
     Indication: Cancer pain
     Route: 048
     Dates: start: 202312
  18. SKENAN [Concomitant]
     Active Substance: MORPHINE SULFATE
     Indication: Cancer pain
     Route: 048
     Dates: start: 20240112
  19. AMLODIPINE [Concomitant]
     Active Substance: AMLODIPINE BESYLATE
     Indication: Hypertension
     Route: 048
     Dates: start: 20240229, end: 20240229
  20. CARVEDILOL [Concomitant]
     Active Substance: CARVEDILOL
     Indication: Portal hypertension
     Route: 048
     Dates: start: 20240209

REACTIONS (3)
  - Osteolysis [Not Recovered/Not Resolved]
  - Infusion related reaction [Recovered/Resolved]
  - Intentional product use issue [Unknown]

NARRATIVE: CASE EVENT DATE: 20240321
